FAERS Safety Report 17347389 (Version 1)
Quarter: 2020Q1

REPORT INFORMATION
  Report Type: Report from Study
  Country: US (occurrence: US)
  Receive Date: 20200129
  Receipt Date: 20200129
  Transmission Date: 20200409
  Serious: No
  Sender: FDA-Public Use
  Company Number: US-EXELIXIS-CABO-19022388

PATIENT
  Sex: Male
  Weight: 92.06 kg

DRUGS (3)
  1. CABOMETYX [Suspect]
     Active Substance: CABOZANTINIB S-MALATE
     Dosage: 60 MG, QD
  2. CABOMETYX [Suspect]
     Active Substance: CABOZANTINIB S-MALATE
     Indication: HEPATIC CANCER
     Dosage: 60 MG, QD (W/O FOOD)
     Dates: start: 20190619
  3. CABOMETYX [Suspect]
     Active Substance: CABOZANTINIB S-MALATE
     Dosage: 40 MG, QD (5.30 AM WITHOUT FOOD)
     Dates: start: 20190729

REACTIONS (19)
  - Sunburn [Unknown]
  - Feeding disorder [Recovered/Resolved]
  - Platelet count decreased [Recovering/Resolving]
  - Vomiting [Unknown]
  - Syncope [Unknown]
  - Dyspepsia [Recovering/Resolving]
  - Nausea [Not Recovered/Not Resolved]
  - Decreased appetite [Recovering/Resolving]
  - Fatigue [Recovering/Resolving]
  - Mouth swelling [Unknown]
  - Skin ulcer [Unknown]
  - Dry skin [Not Recovered/Not Resolved]
  - Asthenia [Unknown]
  - Pain of skin [Not Recovered/Not Resolved]
  - Pruritus [Not Recovered/Not Resolved]
  - Rash macular [Not Recovered/Not Resolved]
  - Skin haemorrhage [Recovered/Resolved]
  - Hypertension [Unknown]
  - Weight decreased [Unknown]
